FAERS Safety Report 6028823-6 (Version None)
Quarter: 2009Q1

REPORT INFORMATION
  Report Type: 
  Country: None (occurrence: None)
  Receive Date: 20090106
  Receipt Date: 20081230
  Transmission Date: 20090719
  Serious: Yes (Other)
  Sender: FDA-Public Use
  Company Number: CN-PFIZER INC-2008161116

PATIENT

DRUGS (2)
  1. SOLU-MEDROL [Suspect]
     Indication: NAUSEA
     Route: 042
  2. SOLU-MEDROL [Suspect]
     Indication: VOMITING

REACTIONS (1)
  - MENTAL DISORDER [None]
